FAERS Safety Report 5933491-5 (Version None)
Quarter: 2008Q4

REPORT INFORMATION
  Report Type: 
  Country: None (occurrence: None)
  Receive Date: 20081024
  Receipt Date: 20081010
  Transmission Date: 20090506
  Serious: Yes (Other)
  Sender: FDA-Public Use
  Company Number: 2008US002742

PATIENT
  Sex: Male

DRUGS (1)
  1. LEXISCAN [Suspect]
     Indication: SCAN MYOCARDIAL PERFUSION

REACTIONS (4)
  - DEHYDRATION [None]
  - HYPOTENSION [None]
  - LOSS OF CONSCIOUSNESS [None]
  - SYNCOPE [None]
